FAERS Safety Report 23294178 (Version 4)
Quarter: 2024Q1

REPORT INFORMATION
  Report Type: Spontaneous
  Country: US (occurrence: US)
  Receive Date: 20231213
  Receipt Date: 20240221
  Transmission Date: 20240410
  Serious: No
  Sender: FDA-Public Use
  Company Number: US-PFIZER INC-202300423226

PATIENT
  Age: 61 Year
  Sex: Female
  Weight: 59.864 kg

DRUGS (2)
  1. NURTEC ODT [Suspect]
     Active Substance: RIMEGEPANT SULFATE
     Indication: Migraine
     Dosage: 1 DF, ALTERNATE DAY
     Dates: start: 20231128, end: 20231203
  2. NURTEC ODT [Suspect]
     Active Substance: RIMEGEPANT SULFATE
     Indication: Headache
     Dosage: 1 EVERY 3 DAYS
     Dates: start: 20231129, end: 20231203

REACTIONS (10)
  - Dizziness [Recovered/Resolved]
  - Brain fog [Recovered/Resolved]
  - Somnolence [Recovered/Resolved]
  - Memory impairment [Recovered/Resolved]
  - Balance disorder [Recovered/Resolved]
  - Palpitations [Recovering/Resolving]
  - Muscle twitching [Recovered/Resolved]
  - Peripheral swelling [Recovered/Resolved]
  - Pain in extremity [Recovered/Resolved]
  - Off label use [Unknown]

NARRATIVE: CASE EVENT DATE: 20231128
